FAERS Safety Report 5677333-4 (Version None)
Quarter: 2008Q1

REPORT INFORMATION
  Report Type: 
  Country: None (occurrence: None)
  Receive Date: 20080320
  Receipt Date: 20080320
  Transmission Date: 20080703
  Serious: Yes (Death)
  Sender: FDA-Public Use
  Company Number: None

PATIENT
  Age: 55 Year
  Sex: Female
  Weight: 113 kg

DRUGS (15)
  1. WARFARIN SODIUM [Suspect]
     Indication: DEEP VEIN THROMBOSIS
     Dosage: 5 MG  DAILY  PO
     Route: 048
     Dates: start: 20071201, end: 20080318
  2. ALPRAZOLAM [Concomitant]
  3. ATORVASTATIN CALCIUM [Concomitant]
  4. CELECOXIB [Concomitant]
  5. DULOXETINE [Concomitant]
  6. 1-METHYLFOLATE [Concomitant]
  7. MORPHINE [Concomitant]
  8. NORTRIPTYLINE HCL [Concomitant]
  9. PREGABALIN [Concomitant]
  10. RAMELTEON [Concomitant]
  11. RISPERIDONE [Concomitant]
  12. SERTRALINE [Concomitant]
  13. TIZANIDINE HCL [Concomitant]
  14. TRAMADOL HCL [Concomitant]
  15. WARFARIN SODIUM [Concomitant]

REACTIONS (2)
  - BRAIN DEATH [None]
  - CEREBRAL HAEMATOMA [None]
